FAERS Safety Report 13033653 (Version 1)
Quarter: 2016Q4

REPORT INFORMATION
  Report Type: Spontaneous
  Country: US (occurrence: US)
  Receive Date: 20161215
  Receipt Date: 20161215
  Transmission Date: 20170207
  Serious: Yes (Hospitalization)
  Sender: FDA-Public Use
  Company Number: None

PATIENT
  Age: 61 Year
  Sex: Female

DRUGS (1)
  1. TOBRAMYCIN 300MG SANDOZ [Suspect]
     Active Substance: TOBRAMYCIN
     Indication: BRONCHIECTASIS
     Dosage: BID FOR 28 DAYS ON, 28
     Route: 055
     Dates: start: 20150720

REACTIONS (7)
  - Chest pain [None]
  - Swollen tongue [None]
  - Hypersensitivity [None]
  - Dyspnoea [None]
  - Cough [None]
  - Lung infection [None]
  - Weight decreased [None]

NARRATIVE: CASE EVENT DATE: 201609
